FAERS Safety Report 9871057 (Version 2)
Quarter: 2014Q1

REPORT INFORMATION
  Report Type: Spontaneous
  Country: GB (occurrence: GB)
  Receive Date: 20140205
  Receipt Date: 20140205
  Transmission Date: 20141002
  Serious: Yes (Other)
  Sender: FDA-Public Use
  Company Number: PHFR2013GB003492

PATIENT
  Age: 32 Year
  Sex: Female
  Weight: 49.89 kg

DRUGS (7)
  1. ANAFRANIL [Suspect]
     Indication: ANXIETY
     Dosage: 100 MG, UNK
     Route: 048
     Dates: start: 20110501
  2. CODEINE PHOSPHATE [Interacting]
     Dosage: UNK UKN, UNK
  3. OPIOIDS [Interacting]
     Dosage: UNK UKN, UNK
  4. ORAMORPH [Interacting]
     Dosage: 5 ML, UNK
  5. DIAZEPAM [Concomitant]
     Dosage: 4 MG, QD
  6. TRAMADOL [Concomitant]
     Dosage: UNK UKN, UNK
  7. BUSCOPAN [Concomitant]
     Dosage: UNK UKN, UNK, 2-4 TABLETS 5-10 MIN PRIOR TO OPIATE

REACTIONS (3)
  - Drug interaction [Recovered/Resolved]
  - Vomiting [Recovered/Resolved]
  - Nausea [Unknown]
